FAERS Safety Report 8911014 (Version 1)
Quarter: 2012Q4

REPORT INFORMATION
  Report Type: 
  Country: FR (occurrence: FR)
  Receive Date: 20121116
  Receipt Date: 20121116
  Transmission Date: 20130627
  Serious: Yes (Life-Threatening, Hospitalization)
  Sender: FDA-Public Use
  Company Number: FR-CELGENEUS-056-21880-12110481

PATIENT
  Sex: Male

DRUGS (7)
  1. REVLIMID [Suspect]
     Indication: MULTIPLE MYELOMA
     Dosage: 25 Milligram
     Route: 048
     Dates: start: 20090901
  2. REVLIMID [Suspect]
     Dosage: 25 Milligram
     Route: 048
     Dates: end: 20120918
  3. NEO-DEX [Concomitant]
     Indication: MULTIPLE MYELOMA
     Route: 048
     Dates: start: 20090901, end: 20120918
  4. DECTANCYL [Concomitant]
     Indication: MULTIPLE MYELOMA
     Route: 065
     Dates: start: 20090901
  5. BACTRIM FORTE [Concomitant]
     Indication: DRUG USE FOR UNKNOWN INDICATION
     Dosage: .4286 Tablet
     Route: 048
     Dates: start: 201002
  6. ZELITREX [Concomitant]
     Indication: DRUG USE FOR UNKNOWN INDICATION
     Dosage: 71.4286 Milligram
     Route: 048
     Dates: start: 201002
  7. CLAMOXYL [Concomitant]
     Indication: DRUG USE FOR UNKNOWN INDICATION
     Dosage: 1 Gram
     Route: 048
     Dates: start: 201002

REACTIONS (1)
  - Myelodysplastic syndrome [Not Recovered/Not Resolved]
